FAERS Safety Report 5713278-9 (Version None)
Quarter: 2008Q2

REPORT INFORMATION
  Report Type: 
  Country: None (occurrence: None)
  Receive Date: 20080422
  Receipt Date: 20080418
  Transmission Date: 20081010
  Serious: Yes (Hospitalization)
  Sender: FDA-Public Use
  Company Number: CN-ASTRAZENECA-2008AP02827

PATIENT
  Age: 49 Year
  Sex: Male

DRUGS (1)
  1. ZOLADEX [Suspect]
     Indication: PROSTATE CANCER
     Route: 058
     Dates: start: 20080101

REACTIONS (4)
  - BLOOD GLUCOSE INCREASED [None]
  - HAEMATURIA [None]
  - URINARY TRACT INFECTION [None]
  - WEIGHT DECREASED [None]
